FAERS Safety Report 10474469 (Version 2)
Quarter: 2014Q4

REPORT INFORMATION
  Report Type: Spontaneous
  Country: US (occurrence: US)
  Receive Date: 20140924
  Receipt Date: 20141020
  Transmission Date: 20150528
  Serious: No
  Sender: FDA-Public Use
  Company Number: US-009507513-1409USA011312

PATIENT
  Sex: Male

DRUGS (2)
  1. NOXAFIL [Suspect]
     Active Substance: POSACONAZOLE
     Dosage: 3 TIMES DAILY
     Route: 048
  2. NOXAFIL [Suspect]
     Active Substance: POSACONAZOLE
     Dosage: 3 TIMES DAILY THREE TIMES PER WEEK AND 4 TIMES DAILY TWICE PER WEEK
     Route: 048

REACTIONS (2)
  - Feeling abnormal [Unknown]
  - Inappropriate schedule of drug administration [Unknown]
